FAERS Safety Report 6931481-7 (Version None)
Quarter: 2010Q3

REPORT INFORMATION
  Report Type: 
  Country: None (occurrence: None)
  Receive Date: 20100819
  Receipt Date: 20100806
  Transmission Date: 20110219
  Serious: Yes (Other)
  Sender: FDA-Public Use
  Company Number: US-ELI_LILLY_AND_COMPANY-US201008002543

PATIENT
  Sex: Male

DRUGS (2)
  1. HUMALOG [Suspect]
     Indication: DIABETES MELLITUS
     Dosage: UNK, AS NEEDED
     Route: 065
     Dates: start: 20000101
  2. LANTUS [Concomitant]
     Dosage: 24 U, EACH EVENING
     Route: 065

REACTIONS (5)
  - CARDIAC DISORDER [None]
  - EYE HAEMORRHAGE [None]
  - PARKINSON'S DISEASE [None]
  - TREMOR [None]
  - VISUAL IMPAIRMENT [None]
